FAERS Safety Report 7901468-6 (Version None)
Quarter: 2011Q4

REPORT INFORMATION
  Report Type: 
  Country: None (occurrence: None)
  Receive Date: 20111108
  Receipt Date: 20111024
  Transmission Date: 20120403
  Serious: Yes (Other)
  Sender: FDA-Public Use
  Company Number: GB-ROCHE-1006976

PATIENT
  Age: 22 Year
  Sex: Male

DRUGS (6)
  1. METHYLPREDNISOLONE [Concomitant]
  2. CYCLOPHOSPHAMIDE [Concomitant]
  3. PREDNISOLONE [Concomitant]
  4. METHOTREXATE [Concomitant]
  5. MYCOPHENOLATE MOFETIL [Suspect]
     Indication: MYOSITIS
  6. RITUXIMAB [Suspect]
     Indication: MYOSITIS

REACTIONS (2)
  - BLOOD IMMUNOGLOBULIN M DECREASED [None]
  - DIARRHOEA [None]
